FAERS Safety Report 6897097-6 (Version None)
Quarter: 2010Q3

REPORT INFORMATION
  Report Type: 
  Country: None (occurrence: None)
  Receive Date: 20100802
  Receipt Date: 20070327
  Transmission Date: 20110219
  Serious: No
  Sender: FDA-Public Use
  Company Number: US-PFIZER INC-2007024632

PATIENT
  Sex: Female
  Weight: 98.9 kg

DRUGS (4)
  1. LYRICA [Suspect]
     Indication: PAIN IN EXTREMITY
     Dates: start: 20070307
  2. PLAVIX [Concomitant]
     Dates: start: 20020101
  3. LISINOPRIL [Concomitant]
  4. DRUG USED IN DIABETES [Concomitant]

REACTIONS (1)
  - DRUG INEFFECTIVE [None]
